FAERS Safety Report 10548100 (Version 2)
Quarter: 2014Q4

REPORT INFORMATION
  Report Type: Report from Study
  Country: BR (occurrence: BR)
  Receive Date: 20141028
  Receipt Date: 20141110
  Transmission Date: 20150529
  Serious: Yes (Other)
  Sender: FDA-Public Use
  Company Number: PHHY2014BR139983

PATIENT
  Sex: Female
  Weight: 60 kg

DRUGS (3)
  1. PROLOPA [Concomitant]
     Active Substance: BENSERAZIDE\LEVODOPA
     Indication: DEMENTIA ALZHEIMER^S TYPE
     Dosage: UNK UKN, UNK
     Route: 048
  2. COMTAN [Suspect]
     Active Substance: ENTACAPONE
     Indication: TREMOR
     Dosage: 3 DF, Q8H
     Route: 048
     Dates: start: 201406
  3. COMTAN [Suspect]
     Active Substance: ENTACAPONE
     Indication: OFF LABEL USE

REACTIONS (4)
  - Tremor [Not Recovered/Not Resolved]
  - Weight decreased [Not Recovered/Not Resolved]
  - Drug ineffective [Unknown]
  - Tooth discolouration [Not Recovered/Not Resolved]
